FAERS Safety Report 17996362 (Version 3)
Quarter: 2020Q3

REPORT INFORMATION
  Report Type: Spontaneous
  Country: US (occurrence: US)
  Receive Date: 20200708
  Receipt Date: 20200811
  Transmission Date: 20201103
  Serious: No
  Sender: FDA-Public Use
  Company Number: US-GLAXOSMITHKLINE-US2020AMR122467

PATIENT
  Sex: Female

DRUGS (2)
  1. ZEJULA [Suspect]
     Active Substance: NIRAPARIB
     Dosage: 100 MG, QD
     Route: 048
  2. ZEJULA [Suspect]
     Active Substance: NIRAPARIB
     Indication: OVARIAN CANCER
     Dosage: 300 MG, QD
     Dates: start: 20200611, end: 20200625

REACTIONS (8)
  - Nausea [Unknown]
  - Constipation [Unknown]
  - Stomatitis [Unknown]
  - Asthenia [Unknown]
  - Pharyngeal ulceration [Unknown]
  - Platelet count decreased [Unknown]
  - Dizziness [Unknown]
  - Blood pressure increased [Unknown]
